FAERS Safety Report 6594663-2 (Version None)
Quarter: 2010Q1

REPORT INFORMATION
  Report Type: 
  Country: None (occurrence: None)
  Receive Date: 20100222
  Receipt Date: 20100212
  Transmission Date: 20100710
  Serious: Yes (Other)
  Sender: FDA-Public Use
  Company Number: DE-AMGEN-US393890

PATIENT
  Sex: Female
  Weight: 68 kg

DRUGS (4)
  1. ENBREL [Suspect]
     Indication: PSORIATIC ARTHROPATHY
     Route: 058
     Dates: start: 20091218
  2. HUMIRA [Concomitant]
     Indication: PSORIATIC ARTHROPATHY
     Route: 058
     Dates: end: 20090323
  3. LYRICA [Concomitant]
     Indication: FIBROMYALGIA
     Route: 048
     Dates: start: 20100107
  4. REMICADE [Concomitant]
     Indication: PSORIATIC ARTHROPATHY
     Route: 042
     Dates: end: 20090310

REACTIONS (3)
  - MALIGNANT MELANOMA [None]
  - MELANOCYTIC NAEVUS [None]
  - PRECANCEROUS SKIN LESION [None]
